FAERS Safety Report 7137150-5 (Version None)
Quarter: 2010Q4

REPORT INFORMATION
  Report Type: 
  Country: None (occurrence: None)
  Receive Date: 20101206
  Receipt Date: 20070711
  Transmission Date: 20110411
  Serious: Yes (Death)
  Sender: FDA-Public Use
  Company Number: US-ACTELION-A-US2007-14242

PATIENT

DRUGS (15)
  1. ILOPROST INHALATION SOLUTION 5UG US [Suspect]
     Indication: PULMONARY HYPERTENSION
     Dosage: 5 UG, 6 X /D
     Route: 055
     Dates: start: 20061212, end: 20070627
  2. ILOPROST INHALATION SOLUTION 5UG US [Suspect]
     Dosage: 2.5 UG, SINGLE
     Route: 055
     Dates: start: 20061212, end: 20061212
  3. TRACLEER [Concomitant]
     Dosage: 62.5 MG, OD
     Route: 048
     Dates: start: 20070612
  4. DIGITEK [Concomitant]
     Dosage: 125 MG/KG, OD
     Route: 048
  5. FUROSEMIDE [Concomitant]
     Dosage: 40 MG, OD
     Route: 048
  6. LEVOXYL [Concomitant]
     Dosage: 125 MEQ, OD
     Route: 048
  7. LOVASTATIN [Concomitant]
     Dosage: 100 G, BID
  8. LOVENOX [Concomitant]
     Dosage: 20 MG, QPM
  9. RANITIDINE [Concomitant]
     Dosage: 150 MG, BID
  10. COLCHICINE [Concomitant]
     Dosage: 6 MG, UNK
  11. NIFEDIPINE [Concomitant]
     Dosage: 30 MG, UNK
  12. TYLENOL W/ CODEINE NO. 3 [Concomitant]
  13. SPIRONOLACTONE [Concomitant]
     Dosage: 25 MG, OD
     Route: 048
     Dates: start: 20070612
  14. REVATIO [Concomitant]
     Dosage: 20 UG, TID
     Route: 048
     Dates: start: 20070226
  15. OXYCODONE HCL [Concomitant]
     Dosage: 5 MG, PRN
     Route: 048
     Dates: start: 20070226

REACTIONS (8)
  - COUGH [None]
  - DEATH [None]
  - DIARRHOEA [None]
  - DIZZINESS [None]
  - FATIGUE [None]
  - MUSCLE SPASMS [None]
  - NAUSEA [None]
  - PAIN IN EXTREMITY [None]
